FAERS Safety Report 25134531 (Version 1)
Quarter: 2025Q1

REPORT INFORMATION
  Report Type: Spontaneous
  Country: US (occurrence: None)
  Receive Date: 20250327
  Receipt Date: 20250327
  Transmission Date: 20250409
  Serious: Yes (Other)
  Sender: FDA-CTU
  Company Number: None

PATIENT
  Age: 59 Year
  Sex: Female

DRUGS (8)
  1. NEMLUVIO [Suspect]
     Active Substance: NEMOLIZUMAB-ILTO
     Indication: Neurodermatitis
     Dosage: 30 MG MONTHLY SUBCUTANEOUS
     Route: 058
     Dates: start: 20250219, end: 20250319
  2. ALLOPURINOL [Concomitant]
     Active Substance: ALLOPURINOL
  3. ALPRAZOLAM [Concomitant]
     Active Substance: ALPRAZOLAM
  4. CALCITRIOL [Concomitant]
     Active Substance: CALCITRIOL
  5. DULOXETINE [Concomitant]
     Active Substance: DULOXETINE
  6. FUROSEMIDE [Concomitant]
     Active Substance: FUROSEMIDE
  7. LISINOPRIL [Concomitant]
     Active Substance: LISINOPRIL
  8. NALTREXONE [Concomitant]
     Active Substance: NALTREXONE

REACTIONS (3)
  - Rash [None]
  - Skin exfoliation [None]
  - Skin exfoliation [None]

NARRATIVE: CASE EVENT DATE: 20250225
